FAERS Safety Report 14630130 (Version 5)
Quarter: 2020Q1

REPORT INFORMATION
  Report Type: Spontaneous
  Country: US (occurrence: US)
  Receive Date: 20180313
  Receipt Date: 20200130
  Transmission Date: 20200409
  Serious: Yes (Other)
  Sender: FDA-Public Use
  Company Number: US-PFIZER INC-2018102847

PATIENT
  Age: 52 Year
  Sex: Male

DRUGS (2)
  1. ATORVASTATIN CALCIUM. [Suspect]
     Active Substance: ATORVASTATIN CALCIUM
     Dosage: UNK
     Dates: start: 2009, end: 2012
  2. LIPITOR [Concomitant]
     Active Substance: ATORVASTATIN CALCIUM
     Dosage: UNK
     Dates: start: 1996

REACTIONS (5)
  - Drug ineffective [Recovered/Resolved]
  - Pain [Unknown]
  - Influenza like illness [Unknown]
  - Rotator cuff syndrome [Unknown]
  - Impaired healing [Unknown]

NARRATIVE: CASE EVENT DATE: 2009
